FAERS Safety Report 7584735-8 (Version None)
Quarter: 2011Q2

REPORT INFORMATION
  Report Type: 
  Country: None (occurrence: None)
  Receive Date: 20110630
  Receipt Date: 20110627
  Transmission Date: 20111010
  Serious: Yes (Hospitalization)
  Sender: FDA-Public Use
  Company Number: FR-GILEAD-2011-0038075

PATIENT
  Age: 55 Year
  Sex: Male

DRUGS (1)
  1. TRUVADA [Suspect]
     Indication: HIV INFECTION

REACTIONS (6)
  - ACUTE PULMONARY OEDEMA [None]
  - BLOOD PHOSPHORUS DECREASED [None]
  - PROTEINURIA [None]
  - MYOCARDITIS [None]
  - RENAL FAILURE ACUTE [None]
  - SHOCK [None]
